FAERS Safety Report 4300583-6 (Version None)
Quarter: 2004Q1

REPORT INFORMATION
  Report Type: 
  Country: None (occurrence: None)
  Receive Date: 20040218
  Receipt Date: 20040203
  Transmission Date: 20041129
  Serious: Yes (Hospitalization)
  Sender: FDA-Public Use
  Company Number: 2003IM000145

PATIENT
  Age: 53 Year
  Sex: Male
  Weight: 105.6427 kg

DRUGS (17)
  1. ACTIMMUNE [Suspect]
     Indication: HEPATIC CIRRHOSIS
     Dosage: 100 UG; TIW; SUBCUTANEOUS
     Route: 058
     Dates: start: 20020715, end: 20030114
  2. ACTIMMUNE [Suspect]
     Indication: HEPATIC FIBROSIS
     Dosage: 100 UG; TIW; SUBCUTANEOUS
     Route: 058
     Dates: start: 20020715, end: 20030114
  3. ACTIMMUNE [Suspect]
     Indication: HEPATITIS C
     Dosage: 100 UG; TIW; SUBCUTANEOUS
     Route: 058
     Dates: start: 20020715, end: 20030114
  4. PERCOCET [Concomitant]
  5. ALBUTEROL [Concomitant]
  6. AMMONIUM LACTATE [Concomitant]
  7. FOLIC ACID [Concomitant]
  8. FUROSEMIDE [Concomitant]
  9. NIFEDIPINE [Concomitant]
  10. PAROXETINE HCL [Concomitant]
  11. TRAZODONE HCL [Concomitant]
  12. ZINC SULFATE [Concomitant]
  13. UREA CREAM [Concomitant]
  14. VITAMIN E [Concomitant]
  15. VITAMIN B-12 [Concomitant]
  16. DIPHENHYDRAMINE HCL [Concomitant]
  17. PAXIL [Concomitant]

REACTIONS (24)
  - ABNORMAL BEHAVIOUR [None]
  - AGITATION [None]
  - AMMONIA INCREASED [None]
  - ANXIETY [None]
  - DELUSION [None]
  - DEPRESSION [None]
  - DRUG SCREEN POSITIVE [None]
  - EYE INFECTION [None]
  - FEAR [None]
  - FLASHBACK [None]
  - FLAT AFFECT [None]
  - HALLUCINATION, AUDITORY [None]
  - HOMICIDAL IDEATION [None]
  - PAIN [None]
  - PARANOIA [None]
  - PERSONALITY DISORDER [None]
  - PSYCHOMOTOR AGITATION [None]
  - PSYCHOTIC DISORDER [None]
  - RASH PRURITIC [None]
  - RESTLESSNESS [None]
  - SCAB [None]
  - SOCIAL AVOIDANT BEHAVIOUR [None]
  - SPEECH DISORDER [None]
  - TREMOR [None]
